FAERS Safety Report 11786548 (Version 2)
Quarter: 2016Q4

REPORT INFORMATION
  Report Type: Spontaneous
  Country: US (occurrence: US)
  Receive Date: 20151130
  Receipt Date: 20161017
  Transmission Date: 20170206
  Serious: No
  Sender: FDA-Public Use
  Company Number: US-BIOCOMPATIBLES UK LTD-BTG00480

PATIENT

DRUGS (1)
  1. CROFAB [Suspect]
     Active Substance: CROTALIDAE POLYVALENT IMMUNE FAB (OVINE)
     Indication: SNAKE BITE
     Dosage: 4 VIALS
     Dates: start: 201409

REACTIONS (6)
  - Pain [Unknown]
  - Face oedema [Recovered/Resolved]
  - Pruritus [Unknown]
  - Urticaria [Recovered/Resolved]
  - Hypoaesthesia [Unknown]
  - Platelet disorder [Not Recovered/Not Resolved]
